FAERS Safety Report 7572480-4 (Version None)
Quarter: 2011Q2

REPORT INFORMATION
  Report Type: 
  Country: None (occurrence: None)
  Receive Date: 20110625
  Receipt Date: 20110621
  Transmission Date: 20111010
  Serious: Yes (Other)
  Sender: FDA-Public Use
  Company Number: SE-ALLERGAN-1107517US

PATIENT
  Age: 37 Year
  Sex: Female

DRUGS (1)
  1. VISTABEL [Suspect]
     Indication: SKIN WRINKLING
     Dosage: 43 UNITS, SINGLE
     Route: 030
     Dates: start: 20110317, end: 20110317

REACTIONS (1)
  - MYOTONIA [None]
